FAERS Safety Report 9830579 (Version 1)
Quarter: 2014Q1

REPORT INFORMATION
  Report Type: Spontaneous
  Country: US (occurrence: US)
  Receive Date: 20140120
  Receipt Date: 20140120
  Transmission Date: 20141002
  Serious: Yes (Other)
  Sender: FDA-Public Use
  Company Number: US-ALLERGAN-1400739US

PATIENT
  Age: 83 Year
  Sex: Female

DRUGS (1)
  1. COMBIGAN[R] [Suspect]
     Indication: GLAUCOMA
     Dosage: 2 GTT, BID
     Route: 047
     Dates: start: 201301, end: 201305

REACTIONS (2)
  - Cataract [Unknown]
  - Eye disorder [Unknown]
